FAERS Safety Report 16871125 (Version 1)
Quarter: 2019Q3

REPORT INFORMATION
  Report Type: Report from Study
  Country: None (occurrence: CO)
  Receive Date: 20190930
  Receipt Date: 20190930
  Transmission Date: 20191005
  Serious: Yes (Other)
  Sender: FDA-Public Use
  Company Number: CO-ABBVIE-19K-036-2888244-00

PATIENT
  Age: 51 Year
  Sex: Female
  Weight: 58 kg

DRUGS (7)
  1. SULFASALAZINE. [Concomitant]
     Active Substance: SULFASALAZINE
     Indication: ANKYLOSING SPONDYLITIS
  2. FOLIC ACID. [Concomitant]
     Active Substance: FOLIC ACID
     Indication: CROHN^S DISEASE
     Route: 048
  3. SULFASALAZINE. [Concomitant]
     Active Substance: SULFASALAZINE
     Indication: CROHN^S DISEASE
     Route: 048
  4. HUMIRA [Suspect]
     Active Substance: ADALIMUMAB
     Indication: CROHN^S DISEASE
     Dosage: HUMIRA AC
     Route: 058
     Dates: start: 20130517
  5. FOLIC ACID. [Concomitant]
     Active Substance: FOLIC ACID
     Indication: ANKYLOSING SPONDYLITIS
  6. AZATHIOPRINE. [Concomitant]
     Active Substance: AZATHIOPRINE
     Indication: CROHN^S DISEASE
     Route: 048
  7. AZATHIOPRINE. [Concomitant]
     Active Substance: AZATHIOPRINE
     Indication: ANKYLOSING SPONDYLITIS

REACTIONS (12)
  - Headache [Recovering/Resolving]
  - Pruritus [Recovering/Resolving]
  - Vitamin D deficiency [Recovering/Resolving]
  - Anxiety [Unknown]
  - Rash [Recovering/Resolving]
  - Asphyxia [Not Recovered/Not Resolved]
  - Breast pain [Unknown]
  - Arthralgia [Recovering/Resolving]
  - Erythema [Recovering/Resolving]
  - Weight increased [Recovering/Resolving]
  - Middle insomnia [Unknown]
  - Ankylosing spondylitis [Recovering/Resolving]

NARRATIVE: CASE EVENT DATE: 2018
